FAERS Safety Report 7338141-1 (Version None)
Quarter: 2011Q1

REPORT INFORMATION
  Report Type: 
  Country: None (occurrence: None)
  Receive Date: 20110308
  Receipt Date: 20110302
  Transmission Date: 20110831
  Serious: No
  Sender: FDA-Public Use
  Company Number: US-TEVA-267165USA

PATIENT
  Sex: Female
  Weight: 70.37 kg

DRUGS (6)
  1. SEROQUEL [Concomitant]
     Indication: SLEEP DISORDER
  2. SEROQUEL [Concomitant]
     Indication: MOOD SWINGS
  3. KLONOPIN [Concomitant]
     Indication: ANXIETY
     Route: 048
  4. SEROQUEL [Concomitant]
     Indication: ANXIETY
     Route: 048
     Dates: start: 20090101
  5. KLONOPIN [Concomitant]
     Indication: MOOD SWINGS
  6. PLAN B ONE-STEP [Suspect]
     Indication: POST COITAL CONTRACEPTION
     Route: 048
     Dates: start: 20110205, end: 20110205

REACTIONS (1)
  - MENSTRUATION IRREGULAR [None]
